FAERS Safety Report 24969609 (Version 1)
Quarter: 2025Q1

REPORT INFORMATION
  Report Type: Other
  Country: US (occurrence: US)
  Receive Date: 20250214
  Receipt Date: 20250214
  Transmission Date: 20250408
  Serious: No
  Sender: TRAVERE THERAPEUTICS
  Company Number: US-TRAVERE-2025TVT00162

PATIENT
  Sex: Female

DRUGS (1)
  1. FILSPARI [Suspect]
     Active Substance: SPARSENTAN
     Indication: IgA nephropathy
     Route: 048

REACTIONS (8)
  - Pyrexia [Unknown]
  - Confusional state [Unknown]
  - Dizziness [Unknown]
  - Depression [Unknown]
  - Somnolence [Unknown]
  - Fatigue [Unknown]
  - Headache [None]
  - Malaise [Unknown]
